FAERS Safety Report 4961193-0 (Version None)
Quarter: 2006Q1

REPORT INFORMATION
  Report Type: 
  Country: None (occurrence: None)
  Receive Date: 20060201
  Receipt Date: 20051024
  Transmission Date: 20060701
  Serious: No
  Sender: FDA-Public Use
  Company Number: 2005PV003739

PATIENT
  Age: 66 Year
  Sex: Female
  Weight: 87.5442 kg

DRUGS (7)
  1. BYETTA [Suspect]
     Indication: DIABETES MELLITUS NON-INSULIN-DEPENDENT
     Dosage: 10 MCG;BID;SC
     Route: 058
     Dates: start: 20050812
  2. AMARYL [Concomitant]
  3. AVANDIA [Concomitant]
  4. LANTUS [Concomitant]
  5. QUINAPRIL [Concomitant]
  6. LIPITOR [Concomitant]
  7. BISOPROLOL [Concomitant]

REACTIONS (6)
  - ABDOMINAL DISTENSION [None]
  - ABDOMINAL PAIN UPPER [None]
  - FLATULENCE [None]
  - INJECTION SITE NODULE [None]
  - MUSCLE TWITCHING [None]
  - SUBCUTANEOUS NODULE [None]
